FAERS Safety Report 4460848-4 (Version None)
Quarter: 2004Q3

REPORT INFORMATION
  Report Type: 
  Country: None (occurrence: None)
  Receive Date: 20040923
  Receipt Date: 20040913
  Transmission Date: 20050211
  Serious: Yes (Hospitalization)
  Sender: FDA-Public Use
  Company Number: 430068K04USA

PATIENT
  Age: 54 Year
  Sex: Male

DRUGS (1)
  1. NOVANTRONE [Suspect]
     Indication: MULTIPLE SCLEROSIS
     Dates: start: 20040621

REACTIONS (2)
  - BRONCHOPNEUMONIA [None]
  - FEBRILE NEUTROPENIA [None]
